FAERS Safety Report 7076460-7 (Version None)
Quarter: 2010Q4

REPORT INFORMATION
  Report Type: 
  Country: None (occurrence: None)
  Receive Date: 20101029
  Receipt Date: 20101029
  Transmission Date: 20110411
  Serious: Yes (Life-Threatening, Hospitalization, Disabling)
  Sender: FDA-Public Use
  Company Number: None

PATIENT
  Sex: Female
  Weight: 67.586 kg

DRUGS (2)
  1. FUROSEMIDE [Suspect]
     Indication: FLUID RETENTION
     Dosage: ONE ONCE A DAY
  2. LIPITOR [Concomitant]

REACTIONS (1)
  - MUSCLE SPASMS [None]
